FAERS Safety Report 4855933-9 (Version None)
Quarter: 2005Q4

REPORT INFORMATION
  Report Type: 
  Country: None (occurrence: None)
  Receive Date: 20051216
  Receipt Date: 20051208
  Transmission Date: 20060501
  Serious: Yes (Hospitalization)
  Sender: FDA-Public Use
  Company Number: FR-GLAXOSMITHKLINE-B0403693A

PATIENT
  Age: 81 Year
  Sex: Male
  Weight: 93 kg

DRUGS (10)
  1. AUGMENTIN '125' [Suspect]
     Indication: PNEUMONIA BACTERIAL
     Dosage: 2G PER DAY
     Route: 042
     Dates: start: 20051022, end: 20051026
  2. AUGMENTIN [Suspect]
     Indication: PNEUMONIA BACTERIAL
     Dosage: 2G PER DAY
     Route: 048
     Dates: start: 20051015, end: 20051021
  3. COLCHIMAX [Suspect]
     Indication: GOUT
     Dosage: 1UNIT PER DAY
     Route: 048
     Dates: start: 20051017, end: 20051025
  4. ALLOPURINOL-RATIOPHARM [Suspect]
     Indication: GOUT
     Dosage: 1UNIT PER DAY
     Route: 048
     Dates: start: 20051017, end: 20051025
  5. LOZOL [Concomitant]
     Dosage: 1UNIT PER DAY
     Route: 048
  6. PLAVIX [Concomitant]
     Route: 048
  7. INSULINE [Concomitant]
     Route: 065
  8. FLECAINIDE ACETATE [Concomitant]
     Route: 065
  9. ZANIDIP [Concomitant]
     Route: 065
  10. ELISOR [Concomitant]
     Route: 065

REACTIONS (5)
  - DERMATITIS BULLOUS [None]
  - EOSINOPHILIA [None]
  - KERATITIS [None]
  - PHARYNX DISCOMFORT [None]
  - RASH MACULAR [None]
